FAERS Safety Report 12882319 (Version 1)
Quarter: 2016Q4

REPORT INFORMATION
  Report Type: Spontaneous
  Country: CA (occurrence: CA)
  Receive Date: 20161025
  Receipt Date: 20161025
  Transmission Date: 20170207
  Serious: Yes (Other)
  Sender: FDA-Public Use
  Company Number: CA-JNJFOC-20161017918

PATIENT
  Age: 4 Year
  Sex: Male

DRUGS (1)
  1. RISPERIDONE. [Suspect]
     Active Substance: RISPERIDONE
     Indication: ATTENTION DEFICIT/HYPERACTIVITY DISORDER
     Route: 065

REACTIONS (9)
  - Product use issue [Unknown]
  - Abnormal behaviour [Unknown]
  - Viral infection [Unknown]
  - Muscular weakness [Unknown]
  - Drooling [Unknown]
  - Drug dispensing error [Unknown]
  - Off label use [Unknown]
  - Dysstasia [Unknown]
  - Accidental overdose [Unknown]
